FAERS Safety Report 19248218 (Version 2)
Quarter: 2021Q3

REPORT INFORMATION
  Report Type: Report from Study
  Country: US (occurrence: US)
  Receive Date: 20210512
  Receipt Date: 20210702
  Transmission Date: 20211014
  Serious: Yes (Hospitalization)
  Sender: FDA-Public Use
  Company Number: US-ROCHE-2806041

PATIENT
  Age: 71 Year
  Sex: Female
  Weight: 58.3 kg

DRUGS (1)
  1. ATEZOLIZUMAB. [Suspect]
     Active Substance: ATEZOLIZUMAB
     Indication: TRANSITIONAL CELL CARCINOMA METASTATIC
     Dosage: DATE OF LAST DOSE OF ATEZOLIZUMAB ADMINISTERED PRIOR TO AE ONSET: 09/NOV/2020
     Route: 065
     Dates: start: 20201109

REACTIONS (1)
  - Oesophageal obstruction [Recovered/Resolved with Sequelae]

NARRATIVE: CASE EVENT DATE: 20201130
